FAERS Safety Report 16906568 (Version 4)
Quarter: 2019Q4

REPORT INFORMATION
  Report Type: Report from Study
  Country: US (occurrence: US)
  Receive Date: 20191011
  Receipt Date: 20191111
  Transmission Date: 20200122
  Serious: Yes (Hospitalization)
  Sender: FDA-Public Use
  Company Number: US-ROCHE-2426881

PATIENT
  Age: 69 Year
  Sex: Male
  Weight: 82.3 kg

DRUGS (5)
  1. ATORVASTATIN [Concomitant]
     Active Substance: ATORVASTATIN
     Route: 048
  2. LISINOPRIL. [Concomitant]
     Active Substance: LISINOPRIL
     Route: 048
  3. ATEZOLIZUMAB. [Suspect]
     Active Substance: ATEZOLIZUMAB
     Indication: CHRONIC MYELOMONOCYTIC LEUKAEMIA
     Dosage: Q2 WEEKS PER 28 DAY
     Route: 042
  4. ASPIRIN [ACETYLSALICYLIC ACID] [Concomitant]
     Active Substance: ASPIRIN
     Route: 065
  5. GUADECITABINE [Suspect]
     Active Substance: GUADECITABINE
     Indication: CHRONIC MYELOMONOCYTIC LEUKAEMIA
     Dosage: QD FIRST 5 DAYS OF 28
     Route: 065
     Dates: start: 20190911, end: 20190915

REACTIONS (8)
  - Pyrexia [Unknown]
  - Multiple organ dysfunction syndrome [Recovering/Resolving]
  - Headache [Unknown]
  - Pneumonitis [Unknown]
  - Acute kidney injury [Recovering/Resolving]
  - Pneumonia [Unknown]
  - Shock [Recovering/Resolving]
  - Febrile neutropenia [Unknown]

NARRATIVE: CASE EVENT DATE: 20190925
